FAERS Safety Report 5787862-0 (Version None)
Quarter: 2008Q2

REPORT INFORMATION
  Report Type: 
  Country: None (occurrence: None)
  Receive Date: 20080625
  Receipt Date: 20080617
  Transmission Date: 20081010
  Serious: Yes (Hospitalization)
  Sender: FDA-Public Use
  Company Number: JP-WYE-H04666408

PATIENT
  Age: 75 Year
  Sex: Male

DRUGS (1)
  1. AMIODARONE HCL [Suspect]
     Dosage: DOSE AND FREQUENCY NOT SPECIFIED
     Route: 065

REACTIONS (1)
  - LUNG DISORDER [None]
